FAERS Safety Report 24462411 (Version 1)
Quarter: 2024Q4

REPORT INFORMATION
  Report Type: Spontaneous
  Country: US (occurrence: None)
  Receive Date: 20241018
  Receipt Date: 20241018
  Transmission Date: 20250115
  Serious: Yes (unspecified)
  Sender: Public
  Company Number: None

PATIENT
  Age: 87 Year
  Sex: Female

DRUGS (1)
  1. PROMACTA [Suspect]
     Active Substance: ELTROMBOPAG OLAMINE
     Dosage: FREQUENCY : DAILY;?

REACTIONS (11)
  - Faeces pale [None]
  - Chromaturia [None]
  - Night sweats [None]
  - Urticaria [None]
  - Scratch [None]
  - Haemorrhage [None]
  - Visual impairment [None]
  - Liver disorder [None]
  - Tooth loss [None]
  - Gait inability [None]
  - Balance disorder [None]
